FAERS Safety Report 4388738-6 (Version None)
Quarter: 2004Q2

REPORT INFORMATION
  Report Type: 
  Country: None (occurrence: None)
  Receive Date: 20040624
  Receipt Date: 20040608
  Transmission Date: 20050107
  Serious: Yes (Hospitalization)
  Sender: FDA-Public Use
  Company Number: 189079

PATIENT
  Age: 54 Year
  Sex: Female
  Weight: 52.1637 kg

DRUGS (5)
  1. AVONEX [Suspect]
     Indication: MULTIPLE SCLEROSIS
     Dosage: 30 MCG QW IM
     Route: 030
     Dates: start: 19960101, end: 20031101
  2. AVONEX [Suspect]
     Indication: MULTIPLE SCLEROSIS
     Dosage: 30 MCG QW IM
     Route: 030
     Dates: start: 20031101
  3. NEURONTIN [Concomitant]
  4. KLONOPIN [Concomitant]
  5. ASPIRIN [Concomitant]

REACTIONS (6)
  - ALCOHOLISM [None]
  - AMNESIA [None]
  - BREAST CANCER [None]
  - HYPOAESTHESIA [None]
  - MULTIPLE SCLEROSIS [None]
  - TREMOR [None]
